FAERS Safety Report 9399438 (Version 1)
Quarter: 2013Q3

REPORT INFORMATION
  Report Type: Report from Study
  Country: FR (occurrence: FR)
  Receive Date: 20130715
  Receipt Date: 20130715
  Transmission Date: 20140515
  Serious: Yes (Other)
  Sender: FDA-Public Use
  Company Number: FR-ROCHE-1247666

PATIENT
  Sex: Male

DRUGS (28)
  1. RITUXIMAB [Suspect]
     Indication: B-CELL LYMPHOMA
     Route: 065
     Dates: start: 20080122
  2. RITUXIMAB [Suspect]
     Route: 065
     Dates: start: 20080226
  3. RITUXIMAB [Suspect]
     Route: 065
     Dates: start: 20080318
  4. RITUXIMAB [Suspect]
     Route: 065
     Dates: start: 20080408
  5. RITUXIMAB [Suspect]
     Route: 065
     Dates: start: 20080429
  6. RITUXIMAB [Suspect]
     Route: 065
     Dates: start: 20080520
  7. RITUXIMAB [Suspect]
     Route: 065
     Dates: start: 20080610
  8. RITUXIMAB [Suspect]
     Route: 065
     Dates: start: 20080702
  9. RITUXIMAB [Suspect]
     Route: 065
     Dates: start: 20081007
  10. RITUXIMAB [Suspect]
     Route: 065
     Dates: start: 20081202
  11. RITUXIMAB [Suspect]
     Route: 065
     Dates: start: 20090203
  12. RITUXIMAB [Suspect]
     Route: 065
     Dates: start: 20090401
  13. ETOPOSIDE [Suspect]
     Indication: B-CELL LYMPHOMA
     Route: 065
     Dates: start: 20080122
  14. ETOPOSIDE [Suspect]
     Route: 065
     Dates: start: 20080226
  15. ETOPOSIDE [Suspect]
     Route: 065
     Dates: start: 20080318
  16. ETOPOSIDE [Suspect]
     Route: 065
     Dates: start: 20080408
  17. ETOPOSIDE [Suspect]
     Route: 065
     Dates: start: 20080429
  18. ETOPOSIDE [Suspect]
     Route: 065
     Dates: start: 20080520
  19. ETOPOSIDE [Suspect]
     Route: 065
     Dates: start: 20080610
  20. ETOPOSIDE [Suspect]
     Route: 065
     Dates: start: 20080702
  21. HOLOXAN [Suspect]
     Indication: B-CELL LYMPHOMA
     Route: 065
     Dates: start: 20080122
  22. HOLOXAN [Suspect]
     Route: 065
     Dates: start: 20080226
  23. HOLOXAN [Suspect]
     Route: 065
     Dates: start: 20080318
  24. HOLOXAN [Suspect]
     Route: 065
     Dates: start: 20080408
  25. HOLOXAN [Suspect]
     Route: 065
     Dates: start: 20080420
  26. HOLOXAN [Suspect]
     Route: 065
     Dates: start: 20080520
  27. HOLOXAN [Suspect]
     Route: 065
     Dates: start: 20080610
  28. HOLOXAN [Suspect]
     Route: 065
     Dates: start: 20080702

REACTIONS (3)
  - Lung neoplasm malignant [Unknown]
  - Pyrexia [Unknown]
  - Bronchitis [Unknown]
